FAERS Safety Report 4628218-3 (Version None)
Quarter: 2005Q2

REPORT INFORMATION
  Report Type: 
  Country: None (occurrence: None)
  Receive Date: 20050404
  Receipt Date: 20050321
  Transmission Date: 20051028
  Serious: Yes (Hospitalization)
  Sender: FDA-Public Use
  Company Number: 2005048319

PATIENT
  Age: 84 Year
  Sex: Female
  Weight: 54 kg

DRUGS (9)
  1. ZOLOFT [Suspect]
     Indication: DEPRESSION
     Dosage: 50 MG, ORAL
     Route: 048
     Dates: start: 20041201, end: 20050207
  2. BROMAZEPAM (BROMAZEPAM) [Concomitant]
  3. ZOLPIDEM TARTRATE [Concomitant]
  4. LEVOKIT CA (CALCIUM CARBONATE, COLECALCIFEROL) [Concomitant]
  5. RABEPRAZOLE SODIUM [Concomitant]
  6. ALENDRONATE SODIUM [Concomitant]
  7. FOLIC ACID [Concomitant]
  8. DICLOFENAC SODIUM [Concomitant]
  9. ACETAMINOPHEN [Concomitant]

REACTIONS (11)
  - ABNORMAL BEHAVIOUR [None]
  - CARDIAC MURMUR [None]
  - CONFUSIONAL STATE [None]
  - DIFFICULTY IN WALKING [None]
  - DISORIENTATION [None]
  - DYSARTHRIA [None]
  - HYPONATRAEMIA [None]
  - INCOHERENT [None]
  - NERVOUS SYSTEM DISORDER [None]
  - RHONCHI [None]
  - SPEECH DISORDER [None]
